FAERS Safety Report 5906682-7 (Version None)
Quarter: 2008Q3

REPORT INFORMATION
  Report Type: 
  Country: None (occurrence: None)
  Receive Date: 20080930
  Receipt Date: 20080918
  Transmission Date: 20090109
  Serious: No
  Sender: FDA-Public Use
  Company Number: 2008-183980-NL

PATIENT
  Age: 25 Year
  Sex: Female

DRUGS (2)
  1. ETONOGESTREL [Suspect]
     Indication: ANTIALLERGIC THERAPY
     Dosage: CONTRACEPTIVE
     Dates: start: 20080714
  2. ANTI-HISTAMINES (UNSPECIFIED) [Concomitant]

REACTIONS (2)
  - BRADYCARDIA [None]
  - SYNCOPE [None]
